FAERS Safety Report 8844340 (Version 1)
Quarter: 2012Q4

REPORT INFORMATION
  Report Type: Report from Study
  Country: CA (occurrence: CA)
  Receive Date: 20121017
  Receipt Date: 20121017
  Transmission Date: 20130627
  Serious: No
  Sender: FDA-Public Use
  Company Number: CA-JNJFOC-20121007609

PATIENT
  Age: 39 Year
  Sex: Female
  Weight: 97 kg

DRUGS (5)
  1. REMICADE [Suspect]
     Indication: CROHN^S DISEASE
     Route: 042
     Dates: start: 20120313
  2. IMURAN [Concomitant]
     Route: 065
  3. EFFEXOR [Concomitant]
     Route: 065
  4. LOSEC [Concomitant]
     Route: 065
  5. VITAMIN D [Concomitant]
     Route: 065

REACTIONS (3)
  - Sinusitis [Not Recovered/Not Resolved]
  - Fungal infection [Recovered/Resolved]
  - Diarrhoea [Recovered/Resolved]
